FAERS Safety Report 7851880-9 (Version None)
Quarter: 2011Q4

REPORT INFORMATION
  Report Type: 
  Country: None (occurrence: None)
  Receive Date: 20111026
  Receipt Date: 20111020
  Transmission Date: 20120403
  Serious: Yes (Hospitalization)
  Sender: FDA-Public Use
  Company Number: BE-ROCHE-1006417

PATIENT
  Sex: Female
  Weight: 66.5 kg

DRUGS (1)
  1. MYCOPHENOLATE MOFETIL (CELLCEPT) [Suspect]
     Indication: VASCULITIS
     Dates: start: 20110615

REACTIONS (2)
  - OESOPHAGEAL CANDIDIASIS [None]
  - WEGENER'S GRANULOMATOSIS [None]
